FAERS Safety Report 7628716-4 (Version None)
Quarter: 2011Q3

REPORT INFORMATION
  Report Type: 
  Country: None (occurrence: None)
  Receive Date: 20110722
  Receipt Date: 20110714
  Transmission Date: 20111222
  Serious: Yes (Hospitalization, Other)
  Sender: FDA-Public Use
  Company Number: US-CELGENEUS-163-21880-11071625

PATIENT
  Age: 69 Year
  Sex: Male

DRUGS (4)
  1. LEVOTHROID [Concomitant]
     Route: 065
  2. PREDNISONE [Concomitant]
     Route: 065
  3. PROCRIT [Concomitant]
     Route: 065
  4. REVLIMID [Suspect]
     Indication: MYELOPROLIFERATIVE DISORDER
     Dosage: 10 MILLIGRAM
     Route: 048
     Dates: start: 20110405, end: 20110623

REACTIONS (4)
  - HYDRONEPHROSIS [None]
  - NEPHROLITHIASIS [None]
  - ACUTE LEUKAEMIA [None]
  - PLATELET COUNT DECREASED [None]
